FAERS Safety Report 5084677-6 (Version None)
Quarter: 2006Q3

REPORT INFORMATION
  Report Type: 
  Country: None (occurrence: None)
  Receive Date: 20060821
  Receipt Date: 20060816
  Transmission Date: 20061208
  Serious: Yes (Other)
  Sender: FDA-Public Use
  Company Number: US-JNJFOC-20060803717

PATIENT
  Sex: Male
  Weight: 83.92 kg

DRUGS (2)
  1. EXTRA STRENGTH TYLENOL [Suspect]
     Route: 048
  2. EXTRA STRENGTH TYLENOL [Suspect]
     Indication: PAIN
     Route: 048

REACTIONS (4)
  - NAUSEA [None]
  - ORAL MUCOSAL BLISTERING [None]
  - POOR QUALITY DRUG ADMINISTERED [None]
  - THROAT IRRITATION [None]
